FAERS Safety Report 9337219 (Version 2)
Quarter: 2013Q2

REPORT INFORMATION
  Report Type: Spontaneous
  Country: FR (occurrence: JP)
  Receive Date: 20130607
  Receipt Date: 20130621
  Transmission Date: 20140414
  Serious: Yes (Hospitalization)
  Sender: FDA-Public Use
  Company Number: JP-FRI-1000045747

PATIENT
  Sex: 0

DRUGS (2)
  1. MILNACIPRAN [Suspect]
     Dosage: 25 MG
     Route: 048
  2. MILNACIPRAN [Suspect]
     Dosage: 50 MG
     Route: 048

REACTIONS (1)
  - Akinesia [Recovering/Resolving]
